FAERS Safety Report 6795778-6 (Version None)
Quarter: 2010Q2

REPORT INFORMATION
  Report Type: 
  Country: None (occurrence: None)
  Receive Date: 20100625
  Receipt Date: 20100611
  Transmission Date: 20101027
  Serious: Yes (Hospitalization)
  Sender: FDA-Public Use
  Company Number: GXKR2010NL07015

PATIENT
  Age: 75 Year
  Sex: Male

DRUGS (2)
  1. DIGOXIN [Suspect]
     Route: 048
  2. SOTALOL HCL [Suspect]
     Route: 048

REACTIONS (4)
  - CARDIOGENIC SHOCK [None]
  - HAEMODIALYSIS [None]
  - MULTIPLE DRUG OVERDOSE [None]
  - RENAL FAILURE [None]
